FAERS Safety Report 13709651 (Version 1)
Quarter: 2017Q3

REPORT INFORMATION
  Report Type: Spontaneous
  Country: US (occurrence: US)
  Receive Date: 20170703
  Receipt Date: 20170703
  Transmission Date: 20171127
  Serious: No
  Sender: FDA-Public Use
  Company Number: US-ASTRAZENECA-2017SE67284

PATIENT
  Age: 17456 Day
  Sex: Female
  Weight: 95.3 kg

DRUGS (3)
  1. METFORMIN [Concomitant]
     Active Substance: METFORMIN HYDROCHLORIDE
     Route: 065
  2. GLIPIZIDE. [Concomitant]
     Active Substance: GLIPIZIDE
     Route: 065
  3. BYDUREON [Suspect]
     Active Substance: EXENATIDE
     Indication: TYPE 2 DIABETES MELLITUS
     Route: 058
     Dates: start: 20170512

REACTIONS (11)
  - Injection site mass [Unknown]
  - Bleeding time prolonged [Unknown]
  - Injection site extravasation [Unknown]
  - Blood glucose decreased [Unknown]
  - Underdose [Unknown]
  - Feeling abnormal [Unknown]
  - Memory impairment [Unknown]
  - Skin mass [Unknown]
  - Injection site haemorrhage [Unknown]
  - Anxiety [Unknown]
  - Injection site pain [Unknown]

NARRATIVE: CASE EVENT DATE: 20170624
